FAERS Safety Report 4266250-2 (Version None)
Quarter: 2004Q1

REPORT INFORMATION
  Report Type: 
  Country: None (occurrence: None)
  Receive Date: 20040106
  Receipt Date: 20031222
  Transmission Date: 20041129
  Serious: Yes (Other)
  Sender: FDA-Public Use
  Company Number: 2003125889

PATIENT
  Age: 40 Year
  Sex: Male
  Weight: 65 kg

DRUGS (1)
  1. SILDENAFIL (SILDENAFIL) [Suspect]
     Indication: ERECTILE DYSFUNCTION
     Dosage: 50 MG (PRN), ORAL
     Route: 048

REACTIONS (2)
  - BLINDNESS [None]
  - MACULAR DEGENERATION [None]
